FAERS Safety Report 17145739 (Version 1)
Quarter: 2019Q4

REPORT INFORMATION
  Report Type: Spontaneous
  Country: SE (occurrence: SE)
  Receive Date: 20191212
  Receipt Date: 20191212
  Transmission Date: 20200122
  Serious: Yes (Hospitalization)
  Sender: FDA-Public Use
  Company Number: SE-009507513-1912SWE004052

PATIENT
  Sex: Female

DRUGS (7)
  1. CISORDINOL TABLETS [Suspect]
     Active Substance: ZUCLOPENTHIXOL
     Dosage: 6 MILLIGRAM
     Route: 048
     Dates: start: 20180926, end: 20180926
  2. ZOPICLONE [Suspect]
     Active Substance: ZOPICLONE
     Dosage: 15 MILLIGRAM
     Route: 048
     Dates: start: 20180926, end: 20180926
  3. PROPAVAN [Suspect]
     Active Substance: PROPIOMAZINE
     Dosage: 150 MILLIGRAM
     Route: 048
     Dates: start: 20180926, end: 20180926
  4. LAMOTRIGINE. [Suspect]
     Active Substance: LAMOTRIGINE
     Dosage: 300 MILLIGRAM
     Route: 048
     Dates: start: 20180926, end: 20180926
  5. MIRTAZAPINE. [Suspect]
     Active Substance: MIRTAZAPINE
     Dosage: 45 MILLIGRAM
     Route: 048
     Dates: start: 20180926, end: 20180926
  6. MELATONIN [Suspect]
     Active Substance: MELATONIN
     Dosage: 6 MILLIGRAM
     Route: 048
     Dates: start: 20180926, end: 20180926
  7. CITALOPRAM [Suspect]
     Active Substance: CITALOPRAM HYDROBROMIDE
     Dosage: 40 MILLIGRAM
     Route: 048
     Dates: start: 20180926, end: 20180926

REACTIONS (2)
  - Intentional self-injury [Unknown]
  - Intentional overdose [Unknown]

NARRATIVE: CASE EVENT DATE: 20180926
